FAERS Safety Report 5595127-5 (Version None)
Quarter: 2008Q1

REPORT INFORMATION
  Report Type: 
  Country: None (occurrence: None)
  Receive Date: 20080117
  Receipt Date: 20080108
  Transmission Date: 20080703
  Serious: Yes (Hospitalization)
  Sender: FDA-Public Use
  Company Number: AT-ELI_LILLY_AND_COMPANY-AT200801000019

PATIENT
  Sex: Female

DRUGS (3)
  1. OLANZAPINE [Suspect]
     Indication: PSYCHOTIC DISORDER
     Dosage: 15 MG, DAILY (1/D)
     Dates: start: 20070101
  2. OLANZAPINE [Suspect]
     Dosage: 5 MG, DAILY (1/D)
     Dates: start: 20071228, end: 20080103
  3. SINTROM [Concomitant]
     Dosage: 0.5 D/F, DAILY (1/D)

REACTIONS (3)
  - EXTRAPYRAMIDAL DISORDER [None]
  - HOSPITALISATION [None]
  - PSYCHOTIC DISORDER [None]
